FAERS Safety Report 21533492 (Version 1)
Quarter: 2022Q4

REPORT INFORMATION
  Report Type: Spontaneous
  Country: DE (occurrence: DE)
  Receive Date: 20221101
  Receipt Date: 20221101
  Transmission Date: 20230113
  Serious: Yes (Hospitalization)
  Sender: FDA-Public Use
  Company Number: None

PATIENT
  Age: 32 Year
  Sex: Male
  Weight: 65 kg

DRUGS (1)
  1. BUPROPION HYDROCHLORIDE [Suspect]
     Active Substance: BUPROPION HYDROCHLORIDE
     Indication: Attention deficit hyperactivity disorder
     Dosage: 150 MG, QD (1X 1 TAGL. 150MG)
     Route: 048
     Dates: start: 20221005, end: 20221010

REACTIONS (14)
  - Mydriasis [Unknown]
  - Fall [Unknown]
  - Acute stress disorder [Unknown]
  - Muscular weakness [Unknown]
  - Drug withdrawal syndrome [Unknown]
  - Muscle twitching [Unknown]
  - Muscle twitching [Unknown]
  - Nausea [Recovering/Resolving]
  - Gastritis [Unknown]
  - Feeling cold [Recovering/Resolving]
  - Vomiting [Recovering/Resolving]
  - Palpitations [Recovering/Resolving]
  - Tremor [Recovered/Resolved]
  - Dizziness [Recovering/Resolving]

NARRATIVE: CASE EVENT DATE: 20221001
